FAERS Safety Report 4497315-8 (Version None)
Quarter: 2004Q3

REPORT INFORMATION
  Report Type: 
  Country: None (occurrence: None)
  Receive Date: 20040927
  Receipt Date: 20040723
  Transmission Date: 20050211
  Serious: No
  Sender: FDA-Public Use
  Company Number: USA040773465

PATIENT
  Age: 10 Year
  Sex: Male
  Weight: 32 kg

DRUGS (4)
  1. STRATTERA [Suspect]
     Indication: ATTENTION DEFICIT/HYPERACTIVITY DISORDER
     Dosage: 25 MG
     Dates: start: 20040301, end: 20040301
  2. METADATE (METHYLPHENIDATE HYDROCHLORIDE) [Concomitant]
  3. ADDERALL 10 [Concomitant]
  4. MIRALAX [Concomitant]

REACTIONS (6)
  - ABDOMINAL PAIN [None]
  - CHILLS [None]
  - DIZZINESS [None]
  - FEELING COLD [None]
  - NAUSEA [None]
  - PALLOR [None]
